FAERS Safety Report 8226002-5 (Version None)
Quarter: 2012Q1

REPORT INFORMATION
  Report Type: 
  Country: None (occurrence: None)
  Receive Date: 20120321
  Receipt Date: 20120316
  Transmission Date: 20120608
  Serious: Yes (Hospitalization, Other)
  Sender: FDA-Public Use
  Company Number: US-PFIZER INC-2011143819

PATIENT
  Sex: Female

DRUGS (4)
  1. CHANTIX [Suspect]
     Dosage: 0.5 MG AND CONTINUING PACK
     Dates: start: 20090414, end: 20090430
  2. CHANTIX [Suspect]
     Indication: SMOKING CESSATION THERAPY
     Dosage: UNK
     Dates: start: 20070201
  3. CHANTIX [Suspect]
     Dosage: 0.5 MG AND CONTINUING PACK
     Dates: start: 20080101, end: 20080101
  4. ALBUTEROL [Concomitant]
     Indication: DYSPNOEA
     Dosage: UNK

REACTIONS (7)
  - ANXIETY [None]
  - DEPRESSION [None]
  - PSYCHOTIC DISORDER [None]
  - NEUROSIS [None]
  - NIGHTMARE [None]
  - SUICIDAL IDEATION [None]
  - INSOMNIA [None]
